FAERS Safety Report 13163361 (Version 1)
Quarter: 2017Q1

REPORT INFORMATION
  Report Type: Spontaneous
  Country: US (occurrence: US)
  Receive Date: 20170129
  Receipt Date: 20170129
  Transmission Date: 20170428
  Serious: Yes (Disabling)
  Sender: FDA-Public Use
  Company Number: None

PATIENT
  Age: 73 Year
  Sex: Female
  Weight: 63.9 kg

DRUGS (2)
  1. MULTI VITAMIN [Concomitant]
     Active Substance: VITAMINS
  2. PERIDEX [Suspect]
     Active Substance: CHLORHEXIDINE GLUCONATE
     Indication: GINGIVAL PAIN
     Dosage: ?          QUANTITY:1 TABLESPOON(S);?TWICE A DAY ORAL
     Route: 048
     Dates: start: 20170118, end: 20170121

REACTIONS (6)
  - Mastication disorder [None]
  - Condition aggravated [None]
  - Oral mucosal blistering [None]
  - Tongue ulceration [None]
  - Dysphagia [None]
  - Administration site pain [None]

NARRATIVE: CASE EVENT DATE: 20170120
